FAERS Safety Report 25615236 (Version 1)
Quarter: 2025Q3

REPORT INFORMATION
  Report Type: Report from Study
  Country: US (occurrence: US)
  Receive Date: 20250729
  Receipt Date: 20250729
  Transmission Date: 20251021
  Serious: Yes (Hospitalization, Disabling, Other)
  Sender: NOVO NORDISK
  Company Number: US-NOVOPROD-1484199

PATIENT
  Age: 58 Year
  Sex: Male

DRUGS (1)
  1. NOVOLOG [Suspect]
     Active Substance: INSULIN ASPART
     Indication: Diabetes mellitus
     Route: 058
     Dates: start: 2022

REACTIONS (10)
  - Injection site infection [Not Recovered/Not Resolved]
  - Eye laser surgery [Unknown]
  - Retinal detachment [Unknown]
  - Rotator cuff syndrome [Unknown]
  - Spinal operation [Not Recovered/Not Resolved]
  - Diabetic neuropathy [Not Recovered/Not Resolved]
  - Cholecystectomy [Unknown]
  - Arthritis [Not Recovered/Not Resolved]
  - COVID-19 [Not Recovered/Not Resolved]
  - Glycosylated haemoglobin increased [Recovering/Resolving]
